FAERS Safety Report 8964814 (Version 1)
Quarter: 2012Q4

REPORT INFORMATION
  Report Type: 
  Country: JP (occurrence: JP)
  Receive Date: 20121214
  Receipt Date: 20121214
  Transmission Date: 20130627
  Serious: Yes (Hospitalization, Other)
  Sender: FDA-Public Use
  Company Number: JP-ROCHE-680333

PATIENT
  Age: 53 Year
  Sex: Male

DRUGS (5)
  1. AVASTIN [Suspect]
     Indication: RECTAL CANCER METASTATIC
     Dosage: ACTION TAKEN: UNKNOWN
     Route: 041
     Dates: start: 20091210, end: 20091210
  2. XELODA [Suspect]
     Indication: RECTAL CANCER METASTATIC
     Route: 048
     Dates: start: 20091029, end: 20091029
  3. XELODA [Suspect]
     Route: 048
     Dates: start: 20091210, end: 20091210
  4. ELPLAT [Concomitant]
     Indication: RECTAL CANCER METASTATIC
     Route: 041
     Dates: start: 20091029, end: 20091029
  5. ELPLAT [Concomitant]
     Route: 041
     Dates: start: 20091210, end: 20091210

REACTIONS (2)
  - Gastrointestinal perforation [Recovered/Resolved]
  - Disseminated intravascular coagulation [Recovering/Resolving]
